FAERS Safety Report 15744080 (Version 5)
Quarter: 2019Q1

REPORT INFORMATION
  Report Type: Report from Study
  Country: IL (occurrence: IL)
  Receive Date: 20181220
  Receipt Date: 20190124
  Transmission Date: 20190417
  Serious: Yes (Hospitalization)
  Sender: FDA-Public Use
  Company Number: IL-IPSEN BIOPHARMACEUTICALS, INC.-2018-19348

PATIENT
  Age: 85 Year
  Sex: Female

DRUGS (26)
  1. SOMATULINE AUTOGEL 90MG [Suspect]
     Active Substance: LANREOTIDE ACETATE
     Indication: ACROMEGALY
     Dosage: 90 MG
     Dates: start: 200311
  2. COUMADIN [Concomitant]
     Active Substance: WARFARIN SODIUM
     Indication: PULMONARY EMBOLISM
  3. ELIQUIS [Concomitant]
     Active Substance: APIXABAN
     Indication: PULMONARY EMBOLISM
  4. GLUCOMIN [Concomitant]
     Active Substance: METFORMIN HYDROCHLORIDE
     Route: 048
  5. BONDORMIN [Concomitant]
     Active Substance: BROTIZOLAM
     Indication: SLEEP DISORDER
     Route: 048
  6. FENTA [Concomitant]
  7. PRAMIN [Concomitant]
     Route: 048
  8. ALPRALID [Concomitant]
     Route: 048
  9. HYDRALAZINE HCL [Concomitant]
     Active Substance: HYDRALAZINE HYDROCHLORIDE
  10. SLOW K [Concomitant]
     Active Substance: POTASSIUM CHLORIDE
     Route: 048
  11. ARAVA [Concomitant]
     Active Substance: LEFLUNOMIDE
     Indication: RHEUMATOID ARTHRITIS
     Route: 048
  12. ALENDRONATE [Concomitant]
     Active Substance: ALENDRONATE SODIUM
     Indication: OSTEOPOROSIS
  13. LANTUS [Concomitant]
     Active Substance: INSULIN GLARGINE
     Dosage: 100 IU/ML
     Route: 058
  14. FOLEX [Concomitant]
     Route: 048
  15. OXYCOD [Concomitant]
     Route: 048
  16. CALCIUM [Concomitant]
     Active Substance: CALCIUM
     Indication: OSTEOPOROSIS
  17. FUSID [Concomitant]
     Route: 048
  18. JARDIANCE [Concomitant]
     Active Substance: EMPAGLIFLOZIN
     Route: 048
  19. ELIQUIS [Concomitant]
     Active Substance: APIXABAN
     Route: 048
  20. LOSEC [Concomitant]
     Active Substance: OMEPRAZOLE
     Route: 048
  21. VITAMIN D3 [Concomitant]
     Active Substance: CHOLECALCIFEROL
  22. AEROVENT [Concomitant]
     Dosage: 1 PUFF
  23. JARDIANCE [Concomitant]
     Active Substance: EMPAGLIFLOZIN
     Route: 048
  24. MAGNOX [Concomitant]
     Route: 048
  25. ALPRALID [Concomitant]
     Route: 048
  26. VITAMIN D3 [Concomitant]
     Active Substance: CHOLECALCIFEROL
     Route: 048

REACTIONS (13)
  - Device leakage [Recovering/Resolving]
  - Urinary tract infection [Unknown]
  - Inflammatory marker increased [Unknown]
  - Cardiac failure congestive [Recovering/Resolving]
  - Somnolence [Unknown]
  - Acute kidney injury [Recovering/Resolving]
  - Inappropriate schedule of product administration [Unknown]
  - General physical health deterioration [Unknown]
  - Abdominal pain [Unknown]
  - Prescribed overdose [Unknown]
  - Cholecystitis [Unknown]
  - Mitral valve incompetence [Recovering/Resolving]
  - Cholelithiasis [Unknown]

NARRATIVE: CASE EVENT DATE: 20181209
